FAERS Safety Report 14302500 (Version 1)
Quarter: 2017Q4

REPORT INFORMATION
  Report Type: Spontaneous
  Country: US (occurrence: US)
  Receive Date: 20171219
  Receipt Date: 20171219
  Transmission Date: 20180321
  Serious: No
  Sender: FDA-Public Use
  Company Number: US-RECKITT BENCKISER HEALTHCARE INT LIMITED-RB-93569-2016

PATIENT
  Age: 34 Year
  Sex: Female

DRUGS (2)
  1. DELSYM [Suspect]
     Active Substance: DEXTROMETHORPHAN
     Indication: COUGH
     Dosage: UNK, BID, FIRST DOSE AT NOON AND SECOND DOSE AT 07:00 PM
     Route: 065
     Dates: start: 20161108
  2. ZOLOFT [Concomitant]
     Active Substance: SERTRALINE HYDROCHLORIDE
     Indication: PRODUCT USED FOR UNKNOWN INDICATION
     Dosage: UNK
     Route: 065

REACTIONS (4)
  - Contraindication to medical treatment [Unknown]
  - Feeling abnormal [Unknown]
  - Intrusive thoughts [Unknown]
  - Dizziness [Unknown]

NARRATIVE: CASE EVENT DATE: 20161108
